FAERS Safety Report 20330033 (Version 1)
Quarter: 2022Q1

REPORT INFORMATION
  Report Type: Spontaneous
  Country: US (occurrence: US)
  Receive Date: 20220113
  Receipt Date: 20220113
  Transmission Date: 20220423
  Serious: No
  Sender: FDA-Public Use
  Company Number: US-CELGENE-USA-20220102344

PATIENT
  Age: 70 Year
  Sex: Male

DRUGS (3)
  1. REVLIMID [Suspect]
     Active Substance: LENALIDOMIDE
     Indication: Follicular lymphoma
     Dosage: 20 MILLIGRAM
     Route: 048
     Dates: start: 20210826
  2. REVLIMID [Suspect]
     Active Substance: LENALIDOMIDE
     Indication: Follicular lymphoma
  3. GAZYVA [Concomitant]
     Active Substance: OBINUTUZUMAB
     Indication: Product used for unknown indication
     Route: 065

REACTIONS (3)
  - Heart rate decreased [Unknown]
  - Dizziness [Unknown]
  - Vision blurred [Unknown]

NARRATIVE: CASE EVENT DATE: 20220102
